FAERS Safety Report 9448324 (Version 1)
Quarter: 2013Q3

REPORT INFORMATION
  Report Type: Spontaneous
  Country: SK (occurrence: SK)
  Receive Date: 20130808
  Receipt Date: 20130808
  Transmission Date: 20140515
  Serious: Yes (Hospitalization)
  Sender: FDA-Public Use
  Company Number: SK-ASTELLAS-2013EU006753

PATIENT
  Sex: Female

DRUGS (1)
  1. VESICARE 10 MG ASTELLAS [Suspect]
     Indication: HYPERTONIC BLADDER
     Dosage: 10 MG, UID/QD
     Route: 048
     Dates: start: 20120907, end: 20130612

REACTIONS (2)
  - Dermatitis allergic [Recovered/Resolved]
  - Rash generalised [Recovered/Resolved]
